FAERS Safety Report 25952134 (Version 1)
Quarter: 2025Q4

REPORT INFORMATION
  Report Type: Spontaneous
  Country: US (occurrence: None)
  Receive Date: 20251022
  Receipt Date: 20251022
  Transmission Date: 20260118
  Serious: No
  Sender: FDA-CTU
  Company Number: None

PATIENT
  Age: 80 Year
  Sex: Male

DRUGS (2)
  1. POMALYST [Suspect]
     Active Substance: POMALIDOMIDE
     Indication: Plasma cell myeloma
     Dosage: FREQUENCY : DAILY;?
     Route: 048
     Dates: start: 20250807, end: 20251020
  2. POMALYST [Suspect]
     Active Substance: POMALIDOMIDE

REACTIONS (6)
  - Fatigue [None]
  - Neutropenia [None]
  - Therapy cessation [None]
  - Rash [None]
  - Asthenia [None]
  - Therapy change [None]

NARRATIVE: CASE EVENT DATE: 20250908
